FAERS Safety Report 10154640 (Version 1)
Quarter: 2014Q2

REPORT INFORMATION
  Report Type: Spontaneous
  Country: US (occurrence: None)
  Receive Date: 20140505
  Receipt Date: 20140505
  Transmission Date: 20141212
  Serious: Yes (Disabling, Other)
  Sender: FDA-Public Use
  Company Number: None

PATIENT
  Age: 25 Year
  Sex: Female
  Weight: 52.16 kg

DRUGS (1)
  1. LYRICA [Suspect]
     Indication: MIGRAINE
     Dosage: 1 PILL, ONCE DAILY, TAKEN BY MOUTH
     Route: 048

REACTIONS (8)
  - Hunger [None]
  - Food craving [None]
  - Vomiting [None]
  - Weight increased [None]
  - Vision blurred [None]
  - Memory impairment [None]
  - Speech disorder [None]
  - Cognitive disorder [None]
